FAERS Safety Report 4563786-1 (Version None)
Quarter: 2005Q1

REPORT INFORMATION
  Report Type: 
  Country: None (occurrence: None)
  Receive Date: 20050128
  Receipt Date: 20041101
  Transmission Date: 20050727
  Serious: No
  Sender: FDA-Public Use
  Company Number: US-GLAXOSMITHKLINE-A0532050A

PATIENT
  Age: 49 Year
  Sex: Female

DRUGS (2)
  1. MEPRON [Suspect]
     Indication: BABESIOSIS
     Dosage: 1TSP TWICE PER DAY
     Route: 048
  2. ZITHROMAX [Concomitant]

REACTIONS (2)
  - INSOMNIA [None]
  - NEURITIS [None]
